FAERS Safety Report 13978414 (Version 2)
Quarter: 2017Q4

REPORT INFORMATION
  Report Type: Spontaneous
  Country: US (occurrence: US)
  Receive Date: 20170915
  Receipt Date: 20171004
  Transmission Date: 20180321
  Serious: Yes (Other)
  Sender: FDA-Public Use
  Company Number: US-009507513-1709USA005564

PATIENT
  Sex: Female
  Weight: 101.59 kg

DRUGS (1)
  1. NEXPLANON [Suspect]
     Active Substance: ETONOGESTREL
     Indication: CONTRACEPTION
     Dosage: 1 DF, UP TO THREE YEARS
     Route: 059
     Dates: start: 20170201, end: 20170221

REACTIONS (6)
  - Vision blurred [Unknown]
  - Diarrhoea [Unknown]
  - Oophorectomy [Unknown]
  - Pain [Unknown]
  - Mass [Unknown]
  - Abdominal pain [Unknown]

NARRATIVE: CASE EVENT DATE: 201702
